FAERS Safety Report 18187204 (Version 1)
Quarter: 2020Q3

REPORT INFORMATION
  Report Type: Report from Study
  Country: GR (occurrence: GR)
  Receive Date: 20200824
  Receipt Date: 20200824
  Transmission Date: 20201103
  Serious: Yes (Hospitalization)
  Sender: FDA-Public Use
  Company Number: GR-ELI_LILLY_AND_COMPANY-GR202008006763

PATIENT
  Age: 75 Year
  Sex: Male

DRUGS (5)
  1. LASIX [Concomitant]
     Active Substance: FUROSEMIDE
     Indication: CARDIAC DISORDER
     Dosage: 1 DOSAGE FORM, DAILY
  2. FORSTEO [Suspect]
     Active Substance: TERIPARATIDE
     Indication: OSTEOPOROSIS
     Dosage: 20 UG, DAILY
     Route: 058
     Dates: start: 20200729, end: 20200812
  3. PIRAMIL [Concomitant]
     Active Substance: RAMIPRIL
     Indication: BLOOD PRESSURE ABNORMAL
     Dosage: UNK
  4. NITRONG [Concomitant]
     Active Substance: NITROGLYCERIN
     Indication: BLOOD PRESSURE ABNORMAL
     Dosage: UNK UNK, 1/2 PATCH DAILY
  5. NITRONG [Concomitant]
     Active Substance: NITROGLYCERIN
     Indication: CARDIAC DISORDER

REACTIONS (2)
  - Chest pain [Recovering/Resolving]
  - Back pain [Recovering/Resolving]

NARRATIVE: CASE EVENT DATE: 20200812
